FAERS Safety Report 22326545 (Version 1)
Quarter: 2023Q2

REPORT INFORMATION
  Report Type: Spontaneous
  Country: US (occurrence: US)
  Receive Date: 20230516
  Receipt Date: 20230516
  Transmission Date: 20230722
  Serious: No
  Sender: FDA-Public Use
  Company Number: US-RADIUS HEALTH INC.-2022US004136

PATIENT
  Age: 76 Year
  Sex: Female

DRUGS (1)
  1. TYMLOS [Suspect]
     Active Substance: ABALOPARATIDE
     Indication: Senile osteoporosis
     Dosage: 80 MICROGRAM, QD
     Route: 058
     Dates: start: 20220824

REACTIONS (8)
  - Flatulence [Unknown]
  - Pollakiuria [Unknown]
  - Faeces soft [Unknown]
  - Decreased appetite [Unknown]
  - Heart rate increased [Unknown]
  - Fatigue [Unknown]
  - Insomnia [Unknown]
  - Palpitations [Unknown]

NARRATIVE: CASE EVENT DATE: 20220801
